FAERS Safety Report 10673183 (Version 2)
Quarter: 2014Q4

REPORT INFORMATION
  Report Type: Report from Study
  Country: CN (occurrence: CN)
  Receive Date: 20141224
  Receipt Date: 20141224
  Transmission Date: 20150529
  Serious: Yes (Hospitalization)
  Sender: FDA-Public Use
  Company Number: CN-AMGEN-2014-2230

PATIENT
  Age: 69 Year
  Sex: Male
  Weight: 78.5 kg

DRUGS (28)
  1. SHEN SONG YANG XIN [Concomitant]
     Indication: EXTRASYSTOLES
     Dosage: UNK
     Route: 048
     Dates: start: 20141001
  2. AZIMTAMIDE [Concomitant]
     Indication: PROPHYLAXIS
     Route: 048
     Dates: start: 20140901
  3. 10% POTASSIUM CHLORIDE [Concomitant]
     Active Substance: POTASSIUM CHLORIDE
     Indication: ACID BASE BALANCE
     Route: 042
     Dates: start: 20140909, end: 20140930
  4. COMPOUND AMINO ACID INJECTION [Concomitant]
     Indication: NUTRITIONAL SUPPLEMENTATION
     Route: 042
     Dates: start: 20141003, end: 20141003
  5. RECOMBINANT HUMAN GRANULOCYTE COLONY-STIMULATING FACTOR INJECTION [Concomitant]
     Indication: PROPHYLAXIS
     Route: 058
     Dates: start: 20140901, end: 20141001
  6. FRUSEMIDE [Concomitant]
     Active Substance: FUROSEMIDE
     Indication: EXTRASYSTOLES
  7. SODIUM BICARBONTE [Concomitant]
     Indication: PROPHYLAXIS
     Route: 042
     Dates: start: 20140909, end: 20141030
  8. 10% POTASSIUM CHLORIDE [Concomitant]
     Active Substance: POTASSIUM CHLORIDE
     Indication: SUPPLEMENTATION THERAPY
  9. MA REN [Concomitant]
     Indication: PROPHYLAXIS
     Dosage: 1.2 G, UNK
     Route: 048
     Dates: start: 20140909, end: 20140918
  10. FRUSEMIDE [Concomitant]
     Active Substance: FUROSEMIDE
     Indication: ATRIAL FIBRILLATION
     Route: 048
     Dates: start: 20140930, end: 20141007
  11. TORSEMIDE. [Concomitant]
     Active Substance: TORSEMIDE
     Indication: EXTRASYSTOLES
     Route: 042
     Dates: start: 20140909, end: 20140909
  12. TORSEMIDE. [Concomitant]
     Active Substance: TORSEMIDE
     Indication: DIURETIC THERAPY
     Route: 042
     Dates: start: 20141003, end: 20141003
  13. CARFILZOMIB [Suspect]
     Active Substance: CARFILZOMIB
     Dosage: FREQUENCY: 6 EVERY 36 DAYS; FREQ. TEXT: DAYS 8, 9, 22, 23, 29, AND 30
     Route: 042
     Dates: start: 20140916, end: 20141008
  14. MELPHALAN [Suspect]
     Active Substance: MELPHALAN
     Indication: PLASMA CELL MYELOMA
     Dosage: FREQUENCY: 4 EVERY 42 DAYS; FREQ. TEXT: DAYS 1-4, EVERY 42 DAYS
     Route: 048
     Dates: start: 20140909
  15. SPIRONOLACTONE. [Concomitant]
     Active Substance: SPIRONOLACTONE
     Indication: EXTRASYSTOLES
     Route: 048
     Dates: start: 20140930, end: 20141008
  16. CARFILZOMIB [Suspect]
     Active Substance: CARFILZOMIB
     Indication: PLASMA CELL MYELOMA
     Dosage: FREQ. TEXT: DAYS 1, 2
     Route: 042
     Dates: start: 20140909, end: 20140910
  17. CARFILZOMIB [Suspect]
     Active Substance: CARFILZOMIB
     Dosage: FREQUENCY: 8 EVERY 42 DAYS; FREQ. TEXT: DAYS 1,2,8,9,22,23,29,30, EVERY 42 DAYS
     Route: 042
     Dates: start: 20141029
  18. PREDNISONE. [Suspect]
     Active Substance: PREDNISONE
     Indication: PLASMA CELL MYELOMA
     Dosage: FREQUENCY: 4 EVERY 42 DAYS; FREQ. TEXT: DAYS 1-4, EVERY 42 DAYS
     Route: 048
     Dates: start: 20140811
  19. DEXAMETHASONE. [Concomitant]
     Active Substance: DEXAMETHASONE
     Indication: PRODUCT USED FOR UNKNOWN INDICATION
  20. MOSAPRIDE [Concomitant]
     Active Substance: MOSAPRIDE
     Indication: PROPHYLAXIS
     Route: 048
     Dates: start: 20140901
  21. LACTULOSE ORAL SOLUTION [Concomitant]
     Active Substance: LACTULOSE
     Indication: CONSTIPATION
     Route: 048
     Dates: start: 20140910, end: 20140915
  22. INSULIN [Concomitant]
     Active Substance: INSULIN NOS
     Indication: BLOOD GLUCOSE DECREASED
     Route: 042
     Dates: start: 20140917, end: 20141030
  23. PREDNISONE. [Suspect]
     Active Substance: PREDNISONE
  24. GLUTATHIONE [Concomitant]
     Active Substance: GLUTATHIONE
     Indication: PROPHYLAXIS
     Route: 042
     Dates: start: 20140909, end: 20141025
  25. VALACYCLOVIR [Concomitant]
     Active Substance: VALACYCLOVIR HYDROCHLORIDE
     Indication: ANTIVIRAL TREATMENT
     Route: 048
     Dates: start: 20140909
  26. OMEPRAZOLE. [Concomitant]
     Active Substance: OMEPRAZOLE
     Indication: PROPHYLAXIS
     Route: 042
     Dates: start: 20140909, end: 20141025
  27. 10% POTASSIUM CHLORIDE [Concomitant]
     Active Substance: POTASSIUM CHLORIDE
     Indication: FLUID REPLACEMENT
  28. ZOLEDRONIC ACID [Concomitant]
     Active Substance: ZOLEDRONIC ACID
     Indication: PROPHYLAXIS
     Route: 042
     Dates: start: 20140930, end: 20140930

REACTIONS (1)
  - Atrial fibrillation [Recovered/Resolved]

NARRATIVE: CASE EVENT DATE: 20141009
